FAERS Safety Report 8520915-2 (Version None)
Quarter: 2012Q3

REPORT INFORMATION
  Report Type: 
  Country: None (occurrence: None)
  Receive Date: 20120712
  Receipt Date: 20120712
  Transmission Date: 20120928
  Serious: Yes (Other)
  Sender: FDA-Public Use
  Company Number: None

PATIENT
  Age: 68 Year
  Sex: Male
  Weight: 90.2658 kg

DRUGS (2)
  1. GLEEVEC [Suspect]
     Indication: CHRONIC MYELOID LEUKAEMIA
     Dosage: 400 MG DAILY PO
     Route: 048
     Dates: start: 20120612, end: 20120702
  2. ALLOPURINOL [Concomitant]

REACTIONS (2)
  - RASH [None]
  - OEDEMA PERIPHERAL [None]
